FAERS Safety Report 16339251 (Version 2)
Quarter: 2019Q2

REPORT INFORMATION
  Report Type: Other
  Country: None (occurrence: DE)
  Receive Date: 20190521
  Receipt Date: 20190610
  Transmission Date: 20190711
  Serious: Yes (Other)
  Sender: FDA-Public Use
  Company Number: DE-LABORATOIRE HRA PHARMA-2067272

PATIENT
  Sex: Male
  Weight: .79 kg

DRUGS (3)
  1. ELLA [Suspect]
     Active Substance: ULIPRISTAL ACETATE
     Indication: EXPOSURE DURING PREGNANCY
     Route: 064
     Dates: start: 20160718, end: 20180718
  2. ACETYLSALICYLIC ACID [Concomitant]
     Active Substance: ASPIRIN
  3. INSULIN [Concomitant]
     Active Substance: INSULIN NOS

REACTIONS (6)
  - Premature baby [None]
  - Maternal exposure during pregnancy [None]
  - Speech disorder developmental [None]
  - Hypospadias [None]
  - Foetal growth restriction [None]
  - Motor dysfunction [None]
